FAERS Safety Report 12497616 (Version 1)
Quarter: 2016Q2

REPORT INFORMATION
  Report Type: Spontaneous
  Country: US (occurrence: US)
  Receive Date: 20160625
  Receipt Date: 20160625
  Transmission Date: 20160815
  Serious: Yes (Other)
  Sender: FDA-Public Use
  Company Number: US-SHIRE-US201607311

PATIENT
  Age: 6 Decade
  Sex: Female

DRUGS (1)
  1. VYVANSE [Suspect]
     Active Substance: LISDEXAMFETAMINE DIMESYLATE
     Indication: PRODUCT USED FOR UNKNOWN INDICATION
     Dosage: UNK(30 OR 40 MG), UNKNOWN
     Route: 048

REACTIONS (3)
  - Hallucination, auditory [Unknown]
  - Adverse drug reaction [Unknown]
  - Hallucination, visual [Unknown]
